FAERS Safety Report 7307545-5 (Version None)
Quarter: 2011Q1

REPORT INFORMATION
  Report Type: 
  Country: None (occurrence: None)
  Receive Date: 20110223
  Receipt Date: 20110214
  Transmission Date: 20110831
  Serious: Yes (Hospitalization)
  Sender: FDA-Public Use
  Company Number: TR-SANOFI-AVENTIS-2011SA009705

PATIENT
  Age: 63 Year
  Sex: Male

DRUGS (7)
  1. WARFARIN SODIUM [Interacting]
     Indication: ATRIAL FIBRILLATION
     Route: 065
     Dates: start: 19940101
  2. HYDROXYCHLOROQUINE [Concomitant]
     Indication: RHEUMATOID ARTHRITIS
     Route: 065
     Dates: end: 20040101
  3. PREDNISOLONE [Concomitant]
     Indication: RHEUMATOID ARTHRITIS
     Route: 065
     Dates: end: 20040101
  4. SULFASALAZINE [Concomitant]
     Indication: RHEUMATOID ARTHRITIS
     Route: 065
     Dates: end: 20040101
  5. LEFLUNOMIDE [Suspect]
     Indication: RHEUMATOID ARTHRITIS
     Route: 065
     Dates: start: 20020101, end: 20041219
  6. METHOTREXATE [Concomitant]
     Indication: RHEUMATOID ARTHRITIS
     Route: 065
     Dates: end: 20040101
  7. WARFARIN SODIUM [Interacting]
     Route: 065
     Dates: start: 19940101

REACTIONS (13)
  - ABDOMINAL ABSCESS [None]
  - SYSTEMIC CANDIDA [None]
  - PYREXIA [None]
  - DISORIENTATION [None]
  - GASTROINTESTINAL HAEMORRHAGE [None]
  - MUSCULOSKELETAL STIFFNESS [None]
  - FINGER DEFORMITY [None]
  - ABDOMINAL DISTENSION [None]
  - MENINGITIS [None]
  - ABDOMINAL PAIN [None]
  - DRUG INTERACTION [None]
  - CONFUSIONAL STATE [None]
  - URINARY INCONTINENCE [None]
